FAERS Safety Report 10035926 (Version 1)
Quarter: 2014Q1

REPORT INFORMATION
  Report Type: Spontaneous
  Country: US (occurrence: US)
  Receive Date: 20140325
  Receipt Date: 20140325
  Transmission Date: 20141002
  Serious: No
  Sender: FDA-Public Use
  Company Number: US-TEVA-470878USA

PATIENT
  Sex: Female

DRUGS (1)
  1. COPAXONE [Suspect]

REACTIONS (2)
  - Injection site pain [Unknown]
  - Injection site haemorrhage [Unknown]
